FAERS Safety Report 8083384 (Version 4)
Quarter: 2013Q2

REPORT INFORMATION
  Report Type: Spontaneous
  Country: US (occurrence: None)
  Receive Date: 20110801
  Receipt Date: 20130429
  Transmission Date: 20140414
  Serious: Yes (Hospitalization, Other)
  Sender: FDA-Public Use
  Company Number: ACO_26066_2011

PATIENT
  Age: 45 Year
  Sex: Female

DRUGS (2)
  1. AMPYRA [Suspect]
     Indication: GAIT DISTURBANCE
     Dosage: 10 MG, BID
     Dates: start: 201104, end: 201107
  2. TYSABRI (NATALIZUMAB) [Concomitant]

REACTIONS (5)
  - Convulsion [None]
  - Mental disorder [None]
  - Multiple sclerosis [None]
  - Multiple sclerosis relapse [None]
  - Overdose [None]
